FAERS Safety Report 5452712-9 (Version None)
Quarter: 2007Q3

REPORT INFORMATION
  Report Type: 
  Country: None (occurrence: None)
  Receive Date: 20070914
  Receipt Date: 20070914
  Transmission Date: 20080115
  Serious: Yes (Death, Hospitalization, Other)
  Sender: FDA-Public Use
  Company Number: BR-ASTRAZENECA-2007UW03701

PATIENT
  Age: 79 Year
  Sex: Female
  Weight: 92 kg

DRUGS (3)
  1. ARIMIDEX [Suspect]
     Indication: BREAST CANCER
     Route: 048
     Dates: start: 20040101, end: 20070201
  2. GARDAN TAB [Concomitant]
     Route: 048
     Dates: start: 19990101
  3. CAPTOPRIL [Concomitant]
     Indication: HYPERTENSION
     Route: 048
     Dates: start: 20040101

REACTIONS (5)
  - COMA [None]
  - DRUG INEFFECTIVE [None]
  - METASTASES TO LUNG [None]
  - RESPIRATORY FAILURE [None]
  - WEIGHT INCREASED [None]
